FAERS Safety Report 7644386-3 (Version None)
Quarter: 2011Q3

REPORT INFORMATION
  Report Type: 
  Country: None (occurrence: None)
  Receive Date: 20110722
  Receipt Date: 20110711
  Transmission Date: 20111222
  Serious: Yes (Hospitalization)
  Sender: FDA-Public Use
  Company Number: DSA_45175_2011

PATIENT
  Sex: Female
  Weight: 61.2356 kg

DRUGS (5)
  1. FOLIC ACID [Concomitant]
  2. B12-VITAMIN [Concomitant]
  3. DEPLIN [Concomitant]
  4. APLENZIN [Suspect]
     Indication: DEPRESSION
     Dosage: 348 MG QD ORAL 522 MG QD ORAL
     Route: 048
     Dates: start: 20100409, end: 20101124
  5. APLENZIN [Suspect]
     Indication: DEPRESSION
     Dosage: 348 MG QD ORAL 522 MG QD ORAL
     Route: 048
     Dates: start: 20101221, end: 20110116

REACTIONS (2)
  - CONVULSION [None]
  - LOSS OF CONSCIOUSNESS [None]
